FAERS Safety Report 17230231 (Version 2)
Quarter: 2025Q3

REPORT INFORMATION
  Report Type: Report from Study
  Country: BR (occurrence: BR)
  Receive Date: 20200103
  Receipt Date: 20250707
  Transmission Date: 20251021
  Serious: Yes (Death, Life-Threatening, Hospitalization, Other)
  Sender: NOVARTIS
  Company Number: BR-NOVARTISPH-NVSC2019BR084123

PATIENT
  Sex: Female

DRUGS (13)
  1. FEMARA [Suspect]
     Active Substance: LETROZOLE
     Indication: Invasive ductal breast carcinoma
     Dosage: 2.5 MG, QD
     Route: 048
     Dates: start: 20190212
  2. FEMARA [Suspect]
     Active Substance: LETROZOLE
     Dosage: 2.5 MG, QD
     Route: 048
     Dates: start: 20190910
  3. ABEMACICLIB [Suspect]
     Active Substance: ABEMACICLIB
     Indication: Invasive ductal breast carcinoma
     Dosage: 150 MG, BID
     Route: 048
     Dates: start: 20190212
  4. ABEMACICLIB [Suspect]
     Active Substance: ABEMACICLIB
     Dosage: 150 MG, BID
     Route: 048
     Dates: start: 20190910
  5. ACETAMINOPHEN [Concomitant]
     Active Substance: ACETAMINOPHEN
     Indication: Osteoarthritis
     Route: 065
     Dates: start: 2012
  6. ASPIRIN [Concomitant]
     Active Substance: ASPIRIN
     Indication: Prophylaxis
     Route: 065
     Dates: start: 2008
  7. CAPTOPRIL [Concomitant]
     Active Substance: CAPTOPRIL
     Indication: Hypertension
     Route: 065
     Dates: start: 2008
  8. METFORMIN [Concomitant]
     Active Substance: METFORMIN HYDROCHLORIDE
     Indication: Type 2 diabetes mellitus
     Route: 065
     Dates: start: 2008
  9. HYDROCHLOROTHIAZIDE [Concomitant]
     Active Substance: HYDROCHLOROTHIAZIDE
     Indication: Hypertension
     Route: 065
     Dates: start: 2008
  10. AMITRIPTYLINE [Concomitant]
     Active Substance: AMITRIPTYLINE
     Indication: Depression
     Route: 065
     Dates: start: 1978
  11. Diazepam;Isopropamide iodide [Concomitant]
     Indication: Depression
     Route: 065
     Dates: start: 1978
  12. NAPHAZOLINE HYDROCHLORIDE [Concomitant]
     Active Substance: NAPHAZOLINE HYDROCHLORIDE
     Indication: Lacrimation increased
     Route: 065
     Dates: start: 20190220
  13. ZINC SULFATE HEPTAHYDRATE [Concomitant]
     Active Substance: ZINC SULFATE HEPTAHYDRATE
     Indication: Lacrimation increased
     Route: 065
     Dates: start: 20190220

REACTIONS (25)
  - Diarrhoea [Fatal]
  - Acute kidney injury [Fatal]
  - Urine output decreased [Fatal]
  - Intestinal ischaemia [Fatal]
  - Abdominal sepsis [Fatal]
  - Abdominal pain [Fatal]
  - Abdominal distension [Fatal]
  - Vomiting [Fatal]
  - Sepsis [Fatal]
  - Tachycardia [Fatal]
  - Abdominal infection [Fatal]
  - Breast cancer [Fatal]
  - Septic shock [Fatal]
  - Haemodynamic instability [Fatal]
  - Electrolyte imbalance [Unknown]
  - Cardiac arrest [Not Recovered/Not Resolved]
  - Diarrhoea [Recovered/Resolved]
  - Fatigue [Recovered/Resolved]
  - Diarrhoea [Recovered/Resolved]
  - Diarrhoea [Recovered/Resolved]
  - Diarrhoea [Recovered/Resolved]
  - Dyspepsia [Recovered/Resolved]
  - Confusional state [Unknown]
  - Respiratory disorder [Not Recovered/Not Resolved]
  - Respiratory rate increased [Unknown]

NARRATIVE: CASE EVENT DATE: 20190613
